FAERS Safety Report 16853678 (Version 2)
Quarter: 2019Q4

REPORT INFORMATION
  Report Type: Report from Study
  Country: None (occurrence: CA)
  Receive Date: 20190926
  Receipt Date: 20191009
  Transmission Date: 20200122
  Serious: Yes (Other)
  Sender: FDA-Public Use
  Company Number: CA-ABBVIE-19K-028-2939196-00

PATIENT
  Sex: Female

DRUGS (2)
  1. HUMIRA [Suspect]
     Active Substance: ADALIMUMAB
     Indication: CROHN^S DISEASE
     Route: 058
  2. IMURAN [Concomitant]
     Active Substance: AZATHIOPRINE
     Indication: PRODUCT USED FOR UNKNOWN INDICATION

REACTIONS (14)
  - Stenosis [Unknown]
  - Gastrointestinal inflammation [Unknown]
  - Intestinal stenosis [Unknown]
  - Small intestinal obstruction [Unknown]
  - Large intestinal stenosis [Unknown]
  - Mucosal ulceration [Unknown]
  - Intentional product misuse [Unknown]
  - Post procedural complication [Unknown]
  - Intestinal ulcer [Unknown]
  - Gastrointestinal ulcer [Unknown]
  - Inflammation [Unknown]
  - Faecal calprotectin increased [Unknown]
  - Crohn^s disease [Unknown]
  - Ulcer [Unknown]
